FAERS Safety Report 5683471-2 (Version None)
Quarter: 2008Q1

REPORT INFORMATION
  Report Type: 
  Country: None (occurrence: None)
  Receive Date: 20080326
  Receipt Date: 20080310
  Transmission Date: 20080703
  Serious: Yes (Hospitalization)
  Sender: FDA-Public Use
  Company Number: 2008US000170

PATIENT
  Age: 47 Year
  Sex: Female
  Weight: 77.1 kg

DRUGS (10)
  1. AMEVIVE [Suspect]
     Indication: PSORIASIS
     Dosage: 15 MG, WEEKLY, INTRAMUSCULAR
     Route: 030
     Dates: start: 20060119, end: 20060407
  2. TAZORAC [Concomitant]
  3. DIFFERIN (ADAPALENE) CREAM [Concomitant]
  4. BREVOXYL [Concomitant]
  5. MONODOX [Concomitant]
  6. DERMA SMOOTH [Concomitant]
  7. CLOBEX [Concomitant]
  8. LUSTRA-AF (HYDROQUINONE) [Concomitant]
  9. TRIAZ, 3 % [Concomitant]
  10. TRI-LUMA [Concomitant]

REACTIONS (4)
  - ABDOMINAL PAIN [None]
  - HAEMATOCRIT DECREASED [None]
  - HAEMOGLOBIN DECREASED [None]
  - INCISION SITE PAIN [None]
